FAERS Safety Report 22219577 (Version 1)
Quarter: 2023Q2

REPORT INFORMATION
  Report Type: Spontaneous
  Country: CA (occurrence: CA)
  Receive Date: 20230417
  Receipt Date: 20230417
  Transmission Date: 20230721
  Serious: Yes (Hospitalization, Other)
  Sender: FDA-Public Use
  Company Number: CA-PFIZER INC-202300155933

PATIENT
  Age: 70 Year
  Sex: Male

DRUGS (1)
  1. LONITEN [Suspect]
     Active Substance: MINOXIDIL
     Dosage: 2.5 MG

REACTIONS (4)
  - Mycobacterium avium complex infection [Unknown]
  - Tuberculosis [Unknown]
  - Renal disorder [Unknown]
  - Immunosuppression [Recovering/Resolving]
